FAERS Safety Report 6226063-9 (Version None)
Quarter: 2009Q2

REPORT INFORMATION
  Report Type: 
  Country: None (occurrence: None)
  Receive Date: 20090612
  Receipt Date: 20090507
  Transmission Date: 20091009
  Serious: No
  Sender: FDA-Public Use
  Company Number: US-ABBOTT-09P-163-0572139-00

PATIENT
  Sex: Male

DRUGS (5)
  1. HUMIRA [Suspect]
     Indication: COLITIS ULCERATIVE
     Dates: start: 20090409
  2. ENTECORT [Concomitant]
     Indication: DRUG USE FOR UNKNOWN INDICATION
  3. PROBIOTIC PILL [Concomitant]
     Indication: DRUG USE FOR UNKNOWN INDICATION
  4. GENERIC ENSURE SUPPLEMENT WITH IRON [Concomitant]
     Indication: DRUG USE FOR UNKNOWN INDICATION
  5. FERROUS SEQUEL [Concomitant]
     Indication: DRUG USE FOR UNKNOWN INDICATION

REACTIONS (6)
  - BLOOD ALBUMIN DECREASED [None]
  - BLOOD GLUCOSE INCREASED [None]
  - BLOOD IRON DECREASED [None]
  - DIARRHOEA [None]
  - HAEMOGLOBIN DECREASED [None]
  - HAEMORRHAGE [None]
